FAERS Safety Report 5320521-7 (Version None)
Quarter: 2007Q1

REPORT INFORMATION
  Report Type: 
  Country: None (occurrence: None)
  Receive Date: 20070216
  Receipt Date: 20060301
  Transmission Date: 20070707
  Serious: Yes (Other)
  Sender: FDA-Public Use
  Company Number: 2006030584

PATIENT
  Age: 53 Year
  Sex: Female

DRUGS (5)
  1. DALTEPARIN SODIUM [Suspect]
     Indication: THROMBOSIS PROPHYLAXIS
     Dosage: (5000 I.U.)
     Dates: start: 20060203, end: 20060208
  2. ASPIRIN [Concomitant]
  3. PROZAC [Concomitant]
  4. TRIAMTERENE AND HYDROCHLOROTHIAZID ^HARRIS^ (HYDROCHLOROTHIAZIDE, TRIA [Concomitant]
  5. ATENOLOL [Concomitant]

REACTIONS (1)
  - MELAENA [None]
